FAERS Safety Report 9781662 (Version 3)
Quarter: 2014Q1

REPORT INFORMATION
  Report Type: Spontaneous
  Country: IT (occurrence: IT)
  Receive Date: 20131224
  Receipt Date: 20140303
  Transmission Date: 20141002
  Serious: Yes (Life-Threatening, Hospitalization)
  Sender: FDA-Public Use
  Company Number: IT-ACTAVIS-2013-23123

PATIENT
  Age: 59 Year
  Sex: Female

DRUGS (2)
  1. MIRTAZAPINE [Suspect]
     Indication: INTENTIONAL SELF-INJURY
     Dosage: UNK
     Route: 065
     Dates: start: 20131024, end: 20131024
  2. CITALOPRAM [Suspect]
     Indication: INTENTIONAL SELF-INJURY
     Dosage: UNK
     Route: 065
     Dates: start: 20131024, end: 20131024

REACTIONS (3)
  - Coma [Recovered/Resolved]
  - Intentional self-injury [Unknown]
  - Drug abuse [Unknown]
